FAERS Safety Report 8221337-4 (Version None)
Quarter: 2012Q1

REPORT INFORMATION
  Report Type: 
  Country: None (occurrence: None)
  Receive Date: 20120313
  Receipt Date: 20120305
  Transmission Date: 20120608
  Serious: Yes (Other)
  Sender: FDA-Public Use
  Company Number: 2012SP003871

PATIENT
  Age: 50 Year
  Sex: Male

DRUGS (16)
  1. RIBAVIRIN [Suspect]
     Indication: PRODUCT USED FOR UNKNOWN INDICATION
     Dosage: 200 MG; BID; PO
     Route: 048
  2. LISINOPRIL [Concomitant]
  3. ASPIRIN [Concomitant]
  4. MELOXICAM [Concomitant]
  5. REMERON [Concomitant]
  6. VICTOZA [Concomitant]
  7. ACIPHEX [Concomitant]
  8. LORTAB [Concomitant]
  9. LANTUS [Concomitant]
  10. ENBREL [Concomitant]
  11. METFORMIN HCL [Concomitant]
  12. GLIMEPIRIDE [Concomitant]
  13. CYCLOBENZAPRINE HCL [Concomitant]
  14. VICTRELIS [Suspect]
     Indication: CHRONIC HEPATITIS
     Dosage: 800 MG;TID;PO
     Route: 048
     Dates: start: 20111210
  15. TEMAZEPAM [Concomitant]
  16. PEGASYS [Suspect]
     Indication: PRODUCT USED FOR UNKNOWN INDICATION
     Dosage: 180 MCG;QW;SC
     Route: 058

REACTIONS (1)
  - LOCALISED INFECTION [None]
